FAERS Safety Report 7036101-1 (Version None)
Quarter: 2010Q4

REPORT INFORMATION
  Report Type: 
  Country: None (occurrence: None)
  Receive Date: 20101008
  Receipt Date: 20090930
  Transmission Date: 20110411
  Serious: No
  Sender: FDA-Public Use
  Company Number: US-BRISTOL-MYERS SQUIBB COMPANY-14806483

PATIENT
  Sex: Female

DRUGS (4)
  1. AVAPRO [Suspect]
  2. LOVENOX [Suspect]
  3. MULTI-VITAMIN [Concomitant]
  4. ANTACID TAB [Concomitant]

REACTIONS (3)
  - ABDOMINAL DISCOMFORT [None]
  - FLATULENCE [None]
  - NAUSEA [None]
